FAERS Safety Report 4384704-5 (Version None)
Quarter: 2004Q2

REPORT INFORMATION
  Report Type: 
  Country: None (occurrence: None)
  Receive Date: 20040622
  Receipt Date: 20040622
  Transmission Date: 20050107
  Serious: Yes (Other)
  Sender: FDA-Public Use
  Company Number: None

PATIENT
  Age: 77 Year
  Sex: Female
  Weight: 87.0906 kg

DRUGS (1)
  1. ASTELIN [Suspect]
     Indication: SINUS PAIN
     Dosage: 2 SPRAYS CA. 2X DAY/ WEEKS

REACTIONS (3)
  - EPISTAXIS [None]
  - NASAL DISCOMFORT [None]
  - PHARMACEUTICAL PRODUCT COMPLAINT [None]
